FAERS Safety Report 5706522-5 (Version None)
Quarter: 2008Q2

REPORT INFORMATION
  Report Type: 
  Country: None (occurrence: None)
  Receive Date: 20080414
  Receipt Date: 20080407
  Transmission Date: 20081010
  Serious: Yes (Disabling)
  Sender: FDA-Public Use
  Company Number: OSCN-PR-0803L-0162

PATIENT
  Age: 25 Year
  Sex: Female

DRUGS (3)
  1. OMNISCAN [Suspect]
     Indication: DRUG USE FOR UNKNOWN INDICATION
     Dosage: 0.11 MMOL/KG, SINGLE DOSE, I.V.; 0.16 MMOL/KG, SINGLE DOSE, I.V.
     Route: 042
     Dates: start: 20060801, end: 20060801
  2. OMNISCAN [Suspect]
     Indication: DRUG USE FOR UNKNOWN INDICATION
     Dosage: 0.11 MMOL/KG, SINGLE DOSE, I.V.; 0.16 MMOL/KG, SINGLE DOSE, I.V.
     Route: 042
     Dates: start: 20060801, end: 20060801
  3. EPOGEN [Concomitant]

REACTIONS (3)
  - CHOLECYSTECTOMY [None]
  - NEPHROGENIC SYSTEMIC FIBROSIS [None]
  - PAIN [None]
